FAERS Safety Report 24001608 (Version 1)
Quarter: 2024Q2

REPORT INFORMATION
  Report Type: Spontaneous
  Country: US (occurrence: US)
  Receive Date: 20240621
  Receipt Date: 20240621
  Transmission Date: 20240716
  Serious: Yes (Hospitalization, Other)
  Sender: FDA-Public Use
  Company Number: US-DRL-USA-LIT/USA/24/0008719

PATIENT
  Age: 8 Year
  Sex: Female

DRUGS (4)
  1. PROPOFOL [Suspect]
     Active Substance: PROPOFOL
     Indication: New onset refractory status epilepticus
     Dosage: HIGH DOSE
  2. KETAMINE [Concomitant]
     Active Substance: KETAMINE
     Indication: New onset refractory status epilepticus
  3. RITUXIMAB [Concomitant]
     Active Substance: RITUXIMAB
     Indication: New onset refractory status epilepticus
  4. HUMAN IMMUNOGLOBULIN G [Concomitant]
     Active Substance: HUMAN IMMUNOGLOBULIN G
     Indication: New onset refractory status epilepticus
     Route: 042

REACTIONS (1)
  - Drug ineffective for unapproved indication [Unknown]
